FAERS Safety Report 17082076 (Version 1)
Quarter: 2019Q4

REPORT INFORMATION
  Report Type: Spontaneous
  Country: AU (occurrence: AU)
  Receive Date: 20191127
  Receipt Date: 20191127
  Transmission Date: 20200122
  Serious: Yes (Hospitalization)
  Sender: FDA-Public Use
  Company Number: AU-SEPTODONT-200700139

PATIENT
  Sex: Female

DRUGS (1)
  1. SCANDONEST PLAIN [Suspect]
     Active Substance: MEPIVACAINE HYDROCHLORIDE
     Indication: LOCAL ANAESTHESIA
     Route: 004

REACTIONS (6)
  - Presyncope [Unknown]
  - Tachycardia [Unknown]
  - Incorrect route of product administration [Unknown]
  - Panic attack [Unknown]
  - Syncope [Unknown]
  - Dizziness [Unknown]
